FAERS Safety Report 24285959 (Version 1)
Quarter: 2024Q3

REPORT INFORMATION
  Report Type: Spontaneous
  Country: NL (occurrence: NL)
  Receive Date: 20240905
  Receipt Date: 20240905
  Transmission Date: 20241016
  Serious: Yes (Other)
  Sender: PFIZER
  Company Number: None

PATIENT
  Age: 17 Year
  Sex: Female
  Weight: 73 kg

DRUGS (1)
  1. DEPO-PROVERA [Suspect]
     Active Substance: MEDROXYPROGESTERONE ACETATE
     Indication: Contraception
     Dosage: 1 TIME IN 12 WEEKS
     Route: 030
     Dates: start: 20170203, end: 20220901

REACTIONS (2)
  - Injection site fibrosis [Not Recovered/Not Resolved]
  - Withdrawal syndrome [Unknown]
